FAERS Safety Report 16346187 (Version 2)
Quarter: 2025Q3

REPORT INFORMATION
  Report Type: Spontaneous
  Country: EU (occurrence: EU)
  Receive Date: 20190523
  Receipt Date: 20250721
  Transmission Date: 20251021
  Serious: Yes (Other)
  Sender: AUROBINDO
  Company Number: EU-AUROBINDO-AUR-APL-2019-026835

PATIENT
  Age: 57 Year
  Sex: Female

DRUGS (1)
  1. MOXIFLOXACIN [Suspect]
     Active Substance: MOXIFLOXACIN
     Indication: Pneumonia
     Route: 048
     Dates: start: 201707, end: 2017

REACTIONS (5)
  - Intraocular pressure increased [Unknown]
  - Iris hypopigmentation [Not Recovered/Not Resolved]
  - Hyperaemia [Unknown]
  - Lacrimation increased [Unknown]
  - Photophobia [Unknown]

NARRATIVE: CASE EVENT DATE: 20170901
